FAERS Safety Report 19761772 (Version 1)
Quarter: 2021Q3

REPORT INFORMATION
  Report Type: Report from Study
  Country: US (occurrence: US)
  Receive Date: 20210830
  Receipt Date: 20210830
  Transmission Date: 20211014
  Serious: Yes (Hospitalization)
  Sender: FDA-Public Use
  Company Number: NVSC2021US055185

PATIENT
  Sex: Female
  Weight: 81.63 kg

DRUGS (2)
  1. TREPROSTINIL. [Suspect]
     Active Substance: TREPROSTINIL
     Dosage: UNK (112 NG/KG/MIN CONTINUOUS)
     Route: 042
     Dates: start: 20200611
  2. TREPROSTINIL. [Suspect]
     Active Substance: TREPROSTINIL
     Indication: PRODUCT USED FOR UNKNOWN INDICATION
     Dosage: UNK (112 NG/KG/MIN)
     Route: 042
     Dates: start: 20200611

REACTIONS (2)
  - Heart rate abnormal [Unknown]
  - Catheter site related reaction [Unknown]
